FAERS Safety Report 24753310 (Version 3)
Quarter: 2025Q2

REPORT INFORMATION
  Report Type: Spontaneous
  Country: CA (occurrence: CA)
  Receive Date: 20241219
  Receipt Date: 20250530
  Transmission Date: 20250717
  Serious: Yes (Other)
  Sender: CELLTRION
  Company Number: CA-PFIZER INC-202300288159

PATIENT

DRUGS (8)
  1. INFLECTRA [Suspect]
     Active Substance: INFLIXIMAB-DYYB
     Indication: Crohn^s disease
     Route: 042
     Dates: start: 20241010
  2. INFLECTRA [Suspect]
     Active Substance: INFLIXIMAB-DYYB
     Route: 042
     Dates: start: 20241210
  3. INFLECTRA [Suspect]
     Active Substance: INFLIXIMAB-DYYB
     Route: 042
     Dates: start: 20250401
  4. FOLIC ACID [Concomitant]
     Active Substance: FOLIC ACID
     Route: 065
     Dates: start: 2015
  5. METHOTREXATE [Concomitant]
     Active Substance: METHOTREXATE
     Indication: Immunosuppression
     Route: 065
     Dates: start: 2015
  6. METHOTREXATE [Concomitant]
     Active Substance: METHOTREXATE
     Indication: Crohn^s disease
     Dosage: 12.5 MG, WEEKLY
     Route: 048
  7. REMICADE [Concomitant]
     Active Substance: INFLIXIMAB
     Dates: start: 2015
  8. REMICADE [Concomitant]
     Active Substance: INFLIXIMAB
     Dates: start: 20230919

REACTIONS (10)
  - Nephrolithiasis [Recovering/Resolving]
  - Gastrointestinal fistula [Unknown]
  - Anal abscess [Unknown]
  - Anal haemorrhage [Unknown]
  - Anorectal swelling [Unknown]
  - Proctalgia [Unknown]
  - Anal fistula [Unknown]
  - Hyperhidrosis [Unknown]
  - Paraesthesia [Recovered/Resolved]
  - Scar [Unknown]
